FAERS Safety Report 4603196-1 (Version None)
Quarter: 2005Q1

REPORT INFORMATION
  Report Type: 
  Country: None (occurrence: None)
  Receive Date: 20050307
  Receipt Date: 20050225
  Transmission Date: 20050727
  Serious: Yes (Other)
  Sender: FDA-Public Use
  Company Number: 2004-12-1121

PATIENT
  Age: 24 Year
  Sex: Male
  Weight: 94 kg

DRUGS (8)
  1. TEMODAL [Suspect]
     Dosage: 3.5 MG ORAL
     Route: 048
     Dates: start: 20040604
  2. DEXAMETHASONE [Concomitant]
  3. PANTOPRAZOLE SODIUM [Concomitant]
  4. GRAVOL TAB [Concomitant]
  5. TYLENOL W/ CODEINE NO. 3 [Concomitant]
  6. ALDACTONE [Concomitant]
  7. SEPTRA [Concomitant]
     Route: 048
  8. TOPAMAX [Concomitant]

REACTIONS (7)
  - ALANINE AMINOTRANSFERASE INCREASED [None]
  - BLOOD ALKALINE PHOSPHATASE INCREASED [None]
  - LIVER DISORDER [None]
  - LIVER FUNCTION TEST ABNORMAL [None]
  - NAUSEA [None]
  - PULMONARY EMBOLISM [None]
  - VOMITING [None]
